FAERS Safety Report 8795586 (Version 1)
Quarter: 2012Q4

REPORT INFORMATION
  Report Type: 
  Country: US (occurrence: US)
  Receive Date: 20120919
  Receipt Date: 20120919
  Transmission Date: 20130627
  Serious: Yes (Hospitalization, Other)
  Sender: FDA-Public Use
  Company Number: US-BAYER-2012-090754

PATIENT
  Age: 81 Year
  Sex: Female

DRUGS (1)
  1. NEXAVAR [Suspect]
     Indication: RENAL CELL CARCINOMA
     Dosage: 400 mg, BID
     Dates: start: 20120822, end: 201209

REACTIONS (6)
  - Diarrhoea [Recovered/Resolved]
  - Blister [Recovering/Resolving]
  - Asthenia [Unknown]
  - Aphagia [Unknown]
  - Oral mucosal blistering [Recovering/Resolving]
  - Stevens-Johnson syndrome [Unknown]
